FAERS Safety Report 5035293-3 (Version None)
Quarter: 2006Q2

REPORT INFORMATION
  Report Type: 
  Country: None (occurrence: None)
  Receive Date: 20060622
  Receipt Date: 20060622
  Transmission Date: 20061013
  Serious: Yes (Hospitalization)
  Sender: FDA-Public Use
  Company Number: None

PATIENT
  Sex: Female
  Weight: 49.3 kg

DRUGS (6)
  1. CYTARABINE [Suspect]
     Dosage: 70 MG IT
     Route: 037
  2. DAUNORUBICIN HCL [Suspect]
     Dosage: 113.5 MG
  3. METHOTREXATE [Suspect]
     Dosage: 15 MG IT
     Route: 038
  4. PEG-L-ASPARAGINASE (K-H) [Suspect]
     Dosage: 3750 UNIT
  5. PREDNISONE [Suspect]
     Dosage: 18000 ,G
  6. VINCRISTINE SULFATE [Suspect]
     Dosage: 6 MG

REACTIONS (4)
  - ANGIOPATHY [None]
  - ARTERIOVENOUS MALFORMATION [None]
  - CEREBRAL HAEMATOMA [None]
  - HAEMORRHAGE INTRACRANIAL [None]
